FAERS Safety Report 16669924 (Version 1)
Quarter: 2019Q3

REPORT INFORMATION
  Report Type: Report from Study
  Country: US (occurrence: US)
  Receive Date: 20190805
  Receipt Date: 20190805
  Transmission Date: 20191004
  Serious: No
  Sender: FDA-Public Use
  Company Number: US-ALEXION PHARMACEUTICALS INC.-A201911514

PATIENT
  Sex: Male

DRUGS (1)
  1. SOLIRIS [Suspect]
     Active Substance: ECULIZUMAB
     Indication: ATYPICAL HAEMOLYTIC URAEMIC SYNDROME
     Dosage: UNK
     Route: 065

REACTIONS (7)
  - Dysgeusia [Unknown]
  - Blood pressure fluctuation [Unknown]
  - Throat tightness [Unknown]
  - Throat irritation [Unknown]
  - Peripheral swelling [Unknown]
  - Lip swelling [Unknown]
  - Hypersensitivity [Unknown]
